FAERS Safety Report 12389398 (Version 2)
Quarter: 2016Q2

REPORT INFORMATION
  Report Type: Spontaneous
  Country: PT (occurrence: PT)
  Receive Date: 20160520
  Receipt Date: 20160609
  Transmission Date: 20160815
  Serious: Yes (Other)
  Sender: FDA-Public Use
  Company Number: PT-GLAXOSMITHKLINE-PT2016GSK070655

PATIENT
  Sex: Female

DRUGS (1)
  1. VOLTAREN [Suspect]
     Active Substance: DICLOFENAC SODIUM
     Indication: BONE PAIN
     Dosage: 75 MG, QD

REACTIONS (5)
  - Haematochezia [Unknown]
  - Blood test abnormal [Unknown]
  - Haemorrhoids [Unknown]
  - Platelet count decreased [Unknown]
  - Hypertension [Recovering/Resolving]
